FAERS Safety Report 5619660-2 (Version None)
Quarter: 2008Q1

REPORT INFORMATION
  Report Type: 
  Country: None (occurrence: None)
  Receive Date: 20080206
  Receipt Date: 20080125
  Transmission Date: 20080703
  Serious: Yes (Hospitalization)
  Sender: FDA-Public Use
  Company Number: 239026K07USA

PATIENT
  Age: 51 Year
  Sex: Female

DRUGS (1)
  1. REBIF [Suspect]
     Indication: MULTIPLE SCLEROSIS
     Dosage: 44 MCG, 3 IN 1 WEEKS, SUBCUTANEOUS
     Route: 058
     Dates: start: 20060807, end: 20071001

REACTIONS (5)
  - ARRHYTHMIA [None]
  - COLON CANCER RECURRENT [None]
  - DEHYDRATION [None]
  - PNEUMONIA [None]
  - PULMONARY TUBERCULOSIS [None]
